FAERS Safety Report 18252180 (Version 1)
Quarter: 2020Q3

REPORT INFORMATION
  Report Type: Spontaneous
  Country: US (occurrence: US)
  Receive Date: 20200910
  Receipt Date: 20200910
  Transmission Date: 20201103
  Serious: No
  Sender: FDA-Public Use
  Company Number: US-FARMAPROD-202005-0653

PATIENT
  Sex: Female
  Weight: 53 kg

DRUGS (9)
  1. OXERVATE [Suspect]
     Active Substance: CENEGERMIN-BKBJ
     Indication: NEUROTROPHIC KERATOPATHY
     Route: 047
     Dates: start: 20200327
  2. CALCIUM [Concomitant]
     Active Substance: CALCIUM
     Dosage: 600/500 MG EXTENDED RELEASED TABLETS
  3. MULTIVITAMIN [Concomitant]
     Active Substance: VITAMINS
  4. FIBERCON [Concomitant]
     Active Substance: CALCIUM POLYCARBOPHIL
  5. CULTURELLE [Concomitant]
     Active Substance: LACTOBACILLUS RHAMNOSUS
  6. TRIAMTERENE AND HYDROCHLOROTHIAZIDE [Concomitant]
     Active Substance: HYDROCHLOROTHIAZIDE\TRIAMTERENE
     Dosage: 37.5?25 MG
  7. REFRESH OPTIVE [Concomitant]
     Active Substance: CARBOXYMETHYLCELLULOSE SODIUM\GLYCERIN
  8. COSOPT [Concomitant]
     Active Substance: DORZOLAMIDE HYDROCHLORIDE\TIMOLOL MALEATE
     Dosage: 22.3?6.8/ 1 DROPS
  9. SUDAFED [Concomitant]
     Active Substance: PSEUDOEPHEDRINE HYDROCHLORIDE

REACTIONS (3)
  - Eye pain [Unknown]
  - Lacrimation increased [Unknown]
  - Reading disorder [Unknown]
